FAERS Safety Report 18702337 (Version 2)
Quarter: 2021Q2

REPORT INFORMATION
  Report Type: Spontaneous
  Country: US (occurrence: US)
  Receive Date: 20210105
  Receipt Date: 20210608
  Transmission Date: 20210717
  Serious: No
  Sender: FDA-Public Use
  Company Number: US-PFIZER INC-2020518905

PATIENT
  Age: 58 Year
  Sex: Male
  Weight: 95.25 kg

DRUGS (2)
  1. LYRICA [Suspect]
     Active Substance: PREGABALIN
     Indication: FIBROMYALGIA
     Dosage: 75 MG, 3X/DAY
     Route: 048
     Dates: start: 2018
  2. MYOBLOC [Concomitant]
     Active Substance: RIMABOTULINUMTOXINB
     Indication: DYSTONIA
     Dosage: UNK; (EVERY 10 WEEKS)

REACTIONS (3)
  - Pain [Unknown]
  - Rash [Unknown]
  - Pain in extremity [Unknown]
